FAERS Safety Report 17172420 (Version 2)
Quarter: 2019Q4

REPORT INFORMATION
  Report Type: Spontaneous
  Country: US (occurrence: US)
  Receive Date: 20191218
  Receipt Date: 20191218
  Transmission Date: 20200122
  Serious: Yes (Other)
  Sender: FDA-Public Use
  Company Number: US-GILEAD-2019-0442812

PATIENT
  Age: 65 Year
  Sex: Female

DRUGS (2)
  1. KLONOPIN [Concomitant]
     Active Substance: CLONAZEPAM
  2. HARVONI [Suspect]
     Active Substance: LEDIPASVIR\SOFOSBUVIR
     Indication: HEPATITIS C
     Dosage: UNK
     Route: 065
     Dates: start: 2016

REACTIONS (18)
  - Herpes zoster [Not Recovered/Not Resolved]
  - Ear disorder [Unknown]
  - Pain [Not Recovered/Not Resolved]
  - Sinusitis [Unknown]
  - Dyspepsia [Not Recovered/Not Resolved]
  - Depression [Unknown]
  - Ear infection [Unknown]
  - Panic disorder [Not Recovered/Not Resolved]
  - Nausea [Unknown]
  - Lip disorder [Unknown]
  - Skin exfoliation [Not Recovered/Not Resolved]
  - Dizziness [Unknown]
  - Ear pain [Unknown]
  - Thrombocytopenia [Not Recovered/Not Resolved]
  - Substance use [Not Recovered/Not Resolved]
  - Psoriasis [Unknown]
  - Vomiting [Unknown]
  - Decreased appetite [Not Recovered/Not Resolved]

NARRATIVE: CASE EVENT DATE: 2017
